FAERS Safety Report 23347123 (Version 1)
Quarter: 2023Q4

REPORT INFORMATION
  Report Type: Spontaneous
  Country: US (occurrence: None)
  Receive Date: 20231228
  Receipt Date: 20231228
  Transmission Date: 20240110
  Serious: Yes (Hospitalization, Other)
  Sender: FDA-Public Use
  Company Number: None

PATIENT
  Age: 32 Year
  Sex: Male
  Weight: 83.25 kg

DRUGS (1)
  1. .DELTA.8-TETRAHYDROCANNABINOL\CANNABIDIOL\HERBALS [Suspect]
     Active Substance: .DELTA.8-TETRAHYDROCANNABINOL\CANNABIDIOL\HERBALS
     Dates: start: 20231224, end: 20231224

REACTIONS (7)
  - Heart rate increased [None]
  - Coordination abnormal [None]
  - Anxiety [None]
  - Dyspnoea [None]
  - Dyskinesia [None]
  - Confusional state [None]
  - Blood glucose increased [None]

NARRATIVE: CASE EVENT DATE: 20231224
